FAERS Safety Report 19861404 (Version 1)
Quarter: 2021Q3

REPORT INFORMATION
  Report Type: Spontaneous
  Country: DE (occurrence: DE)
  Receive Date: 20210921
  Receipt Date: 20210921
  Transmission Date: 20211014
  Serious: Yes (Other)
  Sender: FDA-Public Use
  Company Number: DE-BAYER-2021-210839

PATIENT
  Sex: Female

DRUGS (1)
  1. JAYDESS [Suspect]
     Active Substance: LEVONORGESTREL
     Dosage: 14 ?G, CONT
     Route: 015
     Dates: start: 202102

REACTIONS (7)
  - Headache [None]
  - Visual impairment [None]
  - Alopecia [None]
  - Eye haemorrhage [None]
  - Abdominal pain [None]
  - Intermenstrual bleeding [None]
  - Withdrawal bleed [None]
